FAERS Safety Report 5322160-0 (Version None)
Quarter: 2007Q1

REPORT INFORMATION
  Report Type: 
  Country: None (occurrence: None)
  Receive Date: 20070220
  Receipt Date: 20061227
  Transmission Date: 20070707
  Serious: No
  Sender: FDA-Public Use
  Company Number: TPA2007A00045

PATIENT
  Sex: Male

DRUGS (1)
  1. ROZEREM [Suspect]

REACTIONS (1)
  - DRUG INEFFECTIVE [None]
